FAERS Safety Report 6785989-8 (Version None)
Quarter: 2010Q2

REPORT INFORMATION
  Report Type: 
  Country: None (occurrence: None)
  Receive Date: 20100622
  Receipt Date: 20100622
  Transmission Date: 20101027
  Serious: Yes (Life-Threatening, Hospitalization, Other)
  Sender: FDA-Public Use
  Company Number: None

PATIENT
  Age: 35 Year
  Sex: Female
  Weight: 81.6475 kg

DRUGS (1)
  1. ALLI [Suspect]
     Indication: WEIGHT CONTROL
     Dosage: 1 CAPSULE EACH MEAL- PO
     Route: 048
     Dates: start: 20100101, end: 20100523

REACTIONS (3)
  - CHOLECYSTECTOMY [None]
  - LIVER INJURY [None]
  - PANCREATITIS [None]
